FAERS Safety Report 22213712 (Version 6)
Quarter: 2023Q4

REPORT INFORMATION
  Report Type: Report from Study
  Country: PL (occurrence: None)
  Receive Date: 20230414
  Receipt Date: 20231006
  Transmission Date: 20240110
  Serious: Yes (Other)
  Sender: FDA-Public Use
  Company Number: 2023A085698

PATIENT
  Age: 27 Year
  Sex: Male
  Weight: 55 kg

DRUGS (15)
  1. AZD-4573 [Suspect]
     Active Substance: AZD-4573
     Indication: Diffuse large B-cell lymphoma refractory
     Dosage: WEEKLY
     Route: 042
     Dates: start: 20230309, end: 20230309
  2. AZD-4573 [Suspect]
     Active Substance: AZD-4573
     Indication: Diffuse large B-cell lymphoma refractory
     Dosage: WEEKLY
     Route: 042
     Dates: start: 20230323, end: 20230323
  3. AZD-4573 [Suspect]
     Active Substance: AZD-4573
     Indication: Diffuse large B-cell lymphoma refractory
     Dosage: WEEKLY
     Route: 042
     Dates: start: 20230406, end: 20230406
  4. AZD-4573 [Suspect]
     Active Substance: AZD-4573
     Indication: Diffuse large B-cell lymphoma refractory
     Dosage: WEEKLY
     Route: 042
     Dates: start: 20230419, end: 20230419
  5. AZD-4573 [Suspect]
     Active Substance: AZD-4573
     Indication: Diffuse large B-cell lymphoma refractory
     Dosage: WEEKLY
     Route: 042
     Dates: start: 20230511, end: 20230511
  6. ACALABRUTINIB [Suspect]
     Active Substance: ACALABRUTINIB
     Indication: Diffuse large B-cell lymphoma refractory
     Route: 048
     Dates: start: 20230309, end: 20230309
  7. ACALABRUTINIB [Suspect]
     Active Substance: ACALABRUTINIB
     Indication: Diffuse large B-cell lymphoma refractory
     Route: 048
     Dates: start: 20230315, end: 20230405
  8. ACALABRUTINIB [Suspect]
     Active Substance: ACALABRUTINIB
     Indication: Diffuse large B-cell lymphoma refractory
     Route: 048
     Dates: start: 202303, end: 202304
  9. ACALABRUTINIB [Suspect]
     Active Substance: ACALABRUTINIB
     Indication: Diffuse large B-cell lymphoma refractory
     Route: 048
     Dates: start: 20230406, end: 20230406
  10. ACALABRUTINIB [Suspect]
     Active Substance: ACALABRUTINIB
     Indication: Diffuse large B-cell lymphoma refractory
     Route: 048
     Dates: start: 20230419, end: 20230426
  11. ACALABRUTINIB [Suspect]
     Active Substance: ACALABRUTINIB
     Indication: Diffuse large B-cell lymphoma refractory
     Route: 048
     Dates: start: 20230511, end: 20230511
  12. BISOPROLOL [Concomitant]
     Active Substance: BISOPROLOL\BISOPROLOL FUMARATE
     Indication: Hypertension
     Route: 048
     Dates: start: 2020
  13. RAMIPRIL [Concomitant]
     Active Substance: RAMIPRIL
     Indication: Hypertension
     Route: 048
     Dates: start: 2020
  14. ALLOPURINOL [Concomitant]
     Active Substance: ALLOPURINOL
     Indication: Prophylaxis
     Route: 048
     Dates: start: 20230302
  15. HEPAREGEN [Concomitant]
     Indication: Transaminases increased
     Route: 048
     Dates: start: 20230310

REACTIONS (1)
  - Hepatic enzyme increased [Recovered/Resolved]

NARRATIVE: CASE EVENT DATE: 20230407
